FAERS Safety Report 5773163-3 (Version None)
Quarter: 2008Q2

REPORT INFORMATION
  Report Type: 
  Country: None (occurrence: None)
  Receive Date: 20080616
  Receipt Date: 20080318
  Transmission Date: 20081010
  Serious: No
  Sender: FDA-Public Use
  Company Number: US-BAYER-200712953BCC

PATIENT
  Sex: Male

DRUGS (4)
  1. ALEVE [Suspect]
     Indication: ARTHRITIS
     Dosage: TOTAL DAILY DOSE: 220 MG  UNIT DOSE: 220 MG
     Route: 048
     Dates: start: 20020101
  2. ALTACE [Concomitant]
  3. LIPITOR [Concomitant]
  4. THEOPHYLLINE [Concomitant]

REACTIONS (2)
  - DIZZINESS [None]
  - PHOTOPSIA [None]
